FAERS Safety Report 7666233-6 (Version None)
Quarter: 2011Q3

REPORT INFORMATION
  Report Type: 
  Country: None (occurrence: None)
  Receive Date: 20110806
  Receipt Date: 20110328
  Transmission Date: 20111222
  Serious: No
  Sender: FDA-Public Use
  Company Number: US-ABBOTT-11P-163-0714706-00

PATIENT
  Sex: Male
  Weight: 72.64 kg

DRUGS (2)
  1. ASPIRIN [Concomitant]
     Indication: CARDIAC DISORDER
  2. NIASPAN [Suspect]
     Indication: BLOOD CHOLESTEROL INCREASED
     Route: 048
     Dates: start: 20110301, end: 20110323

REACTIONS (1)
  - PRURITUS [None]
